FAERS Safety Report 6209121-4 (Version None)
Quarter: 2009Q2

REPORT INFORMATION
  Report Type: 
  Country: None (occurrence: None)
  Receive Date: 20090522
  Receipt Date: 20090127
  Transmission Date: 20091009
  Serious: No
  Sender: FDA-Public Use
  Company Number: 8041842

PATIENT
  Age: 44 Year
  Sex: Male
  Weight: 78.4 kg

DRUGS (8)
  1. CIMZIA [Suspect]
     Indication: CROHN'S DISEASE
     Dosage: 400 MG SC
     Route: 058
     Dates: start: 20090120, end: 20090122
  2. PREDNISONE [Concomitant]
  3. TRICOR [Concomitant]
  4. QUESTRAN [Concomitant]
  5. CHANTIX [Concomitant]
  6. PRILOSEC [Concomitant]
  7. TYLENOL (CAPLET) [Concomitant]
  8. CLARITIN [Concomitant]

REACTIONS (5)
  - BACK PAIN [None]
  - CHEST PAIN [None]
  - MYALGIA [None]
  - PHARYNGEAL OEDEMA [None]
  - PULMONARY CONGESTION [None]
